FAERS Safety Report 10214563 (Version 1)
Quarter: 2014Q2

REPORT INFORMATION
  Report Type: Spontaneous
  Country: US (occurrence: None)
  Receive Date: 20140529
  Receipt Date: 20140529
  Transmission Date: 20141212
  Serious: Yes (Other)
  Sender: FDA-Public Use
  Company Number: 54973 AE # 1535

PATIENT
  Age: 2 Year
  Sex: Male

DRUGS (3)
  1. HYLAND^S BELLADONNA 30X TABLETS [Suspect]
     Indication: PYREXIA
     Dosage: UNKNOWN X 2 DAYS
  2. HYLAND^S BELLADONNA 30X TABLETS [Suspect]
     Indication: INFLAMMATION
     Dosage: UNKNOWN X 2 DAYS
  3. BOIRON BELLADONNA 30C [Suspect]
     Dosage: UNKNOWN X 2 DAYS

REACTIONS (7)
  - Pyrexia [None]
  - Rash [None]
  - Infection [None]
  - Anaemia [None]
  - Splenomegaly [None]
  - Diarrhoea [None]
  - Petechiae [None]
